FAERS Safety Report 18108637 (Version 1)
Quarter: 2020Q3

REPORT INFORMATION
  Report Type: Spontaneous
  Country: JP (occurrence: JP)
  Receive Date: 20200803
  Receipt Date: 20200803
  Transmission Date: 20201103
  Serious: Yes (Death, Hospitalization, Other)
  Sender: FDA-Public Use
  Company Number: JP-AMGEN-JPNNI2019184375

PATIENT
  Age: 43 Year
  Sex: Male

DRUGS (2)
  1. RANMARK [Suspect]
     Active Substance: DENOSUMAB
     Indication: BONE GIANT CELL TUMOUR
     Dosage: 120 MG, 2014/8/13, 8/20, 8/27, 9/10, 10/8, 11/5, 12/3, 2015/1/7, 2/4, 3/3, 3/31, 4/28, 5/26, 6/23, 7
     Route: 058
     Dates: start: 20140813, end: 20190605
  2. DENOTAS [Concomitant]
     Active Substance: CALCIUM CARBONATE\CHOLECALCIFEROL\MAGNESIUM CARBONATE
     Dosage: 2 DF/DAY
     Route: 048
     Dates: start: 20140813, end: 20190629

REACTIONS (6)
  - Congestive hepatopathy [Recovering/Resolving]
  - Deep vein thrombosis [Not Recovered/Not Resolved]
  - Hepatic function abnormal [Recovered/Resolved]
  - Disease progression [Fatal]
  - Aspartate aminotransferase increased [Not Recovered/Not Resolved]
  - Pulmonary embolism [Not Recovered/Not Resolved]

NARRATIVE: CASE EVENT DATE: 201904
